FAERS Safety Report 23501718 (Version 2)
Quarter: 2024Q1

REPORT INFORMATION
  Report Type: Spontaneous
  Country: NL (occurrence: NL)
  Receive Date: 20240208
  Receipt Date: 20240213
  Transmission Date: 20240409
  Serious: Yes (Hospitalization)
  Sender: FDA-Public Use
  Company Number: None

PATIENT
  Age: 41 Year
  Sex: Female
  Weight: 76 kg

DRUGS (2)
  1. CARBAMAZEPINE [Suspect]
     Active Substance: CARBAMAZEPINE
     Indication: Trigeminal neuralgia
     Dosage: 200 MG, Q8H, (3X PER DAG 2 STUK)
     Route: 065
     Dates: start: 20240116, end: 20240130
  2. LEVOTHYROXINE [Concomitant]
     Active Substance: LEVOTHYROXINE\LEVOTHYROXINE SODIUM
     Indication: Product used for unknown indication
     Dosage: 25 UG, (CAPSULE)
     Route: 065

REACTIONS (9)
  - Erythema [Recovering/Resolving]
  - Thrombocytopenia [Recovering/Resolving]
  - Hepatic enzyme increased [Recovering/Resolving]
  - Skin warm [Unknown]
  - Dry skin [Unknown]
  - Pyrexia [Unknown]
  - Pain of skin [Unknown]
  - Malaise [Unknown]
  - Drug eruption [Unknown]
